FAERS Safety Report 8013310-6 (Version None)
Quarter: 2011Q4

REPORT INFORMATION
  Report Type: 
  Country: None (occurrence: None)
  Receive Date: 20111229
  Receipt Date: 20111221
  Transmission Date: 20120403
  Serious: Yes (Other)
  Sender: FDA-Public Use
  Company Number: PHHY2011IT112640

PATIENT
  Sex: Female

DRUGS (1)
  1. ZOMETA [Suspect]
     Indication: BREAST CANCER

REACTIONS (4)
  - DEVICE MATERIAL ISSUE [None]
  - INJURY [None]
  - MUCOSAL EXCORIATION [None]
  - OSTEONECROSIS OF JAW [None]
